FAERS Safety Report 5876044-X (Version None)
Quarter: 2008Q3

REPORT INFORMATION
  Report Type: 
  Country: None (occurrence: None)
  Receive Date: 20080910
  Receipt Date: 20080901
  Transmission Date: 20090109
  Serious: Yes (Hospitalization)
  Sender: FDA-Public Use
  Company Number: FR-JNJFOC-20080706440

PATIENT
  Age: 43 Year
  Sex: Female

DRUGS (6)
  1. REMICADE [Suspect]
     Dosage: 6TH INFUSION
     Route: 042
  2. REMICADE [Suspect]
     Dosage: 6TH INFUSION
     Route: 042
  3. REMICADE [Suspect]
     Dosage: 6TH INFUSION
     Route: 042
  4. REMICADE [Suspect]
     Dosage: 6TH INFUSION
     Route: 042
  5. REMICADE [Suspect]
     Dosage: 6TH INFUSION
     Route: 042
  6. REMICADE [Suspect]
     Indication: ANKYLOSING SPONDYLITIS
     Dosage: INFUSION 1-5, DATES UNSPECIFIED
     Route: 042

REACTIONS (3)
  - CARPAL TUNNEL SYNDROME [None]
  - HEMIPARESIS [None]
  - PARAESTHESIA [None]
